FAERS Safety Report 8888809 (Version 2)
Quarter: 2012Q4

REPORT INFORMATION
  Report Type: 
  Country: BR (occurrence: BR)
  Receive Date: 20121106
  Receipt Date: 20121111
  Transmission Date: 20130627
  Serious: Yes (Death)
  Sender: FDA-Public Use
  Company Number: PHHO2012BR015924

PATIENT
  Age: 78 Year
  Sex: Female
  Weight: 37 kg

DRUGS (3)
  1. ALISKIREN [Suspect]
     Indication: CARDIAC FAILURE
     Dosage: UNK
     Route: 048
     Dates: start: 20110223
  2. SPIRONOLACTONE [Concomitant]
     Indication: CARDIAC FAILURE
     Dosage: 25 mg, QD
     Route: 048
     Dates: start: 20100927
  3. FUROSEMIDE [Concomitant]
     Indication: CARDIAC FAILURE
     Dosage: 40 mg, QD
     Route: 048
     Dates: start: 20120816

REACTIONS (1)
  - Cardiogenic shock [Fatal]
